FAERS Safety Report 5256940-7 (Version None)
Quarter: 2007Q1

REPORT INFORMATION
  Report Type: 
  Country: None (occurrence: None)
  Receive Date: 20070305
  Receipt Date: 20070305
  Transmission Date: 20070707
  Serious: Yes (Other)
  Sender: FDA-Public Use
  Company Number: None

PATIENT
  Sex: Male

DRUGS (21)
  1. OMNISCAN [Suspect]
     Indication: NUCLEAR MAGNETIC RESONANCE IMAGING
     Dosage: IV BOLUS
     Route: 040
     Dates: start: 20040625, end: 20040625
  2. OMNISCAN [Suspect]
     Indication: NUCLEAR MAGNETIC RESONANCE IMAGING
     Dosage: IV BOLUS
     Route: 040
     Dates: start: 20040805, end: 20040805
  3. FK-506 [Concomitant]
  4. MYCOPHENOLATE MOFETIL [Concomitant]
  5. PREDNISONE [Concomitant]
  6. CLOTRIMAZOLE [Concomitant]
  7. GANCICLOVIR [Concomitant]
  8. BACTRIM [Concomitant]
  9. ASPIRIN [Concomitant]
  10. IMDUR [Concomitant]
  11. AMLODIPINE [Concomitant]
  12. LABETALOL HCL [Concomitant]
  13. TORSEMIDE [Concomitant]
  14. OMEPRAZOLE [Concomitant]
  15. PRAVASTATIN [Concomitant]
  16. CELEXA [Concomitant]
  17. MAGNESIUM OXIDE [Concomitant]
  18. MULTI-VITAMIN [Concomitant]
  19. FOLATE [Concomitant]
  20. CALCIUM CARBONATE [Concomitant]
  21. LOVENOX [Concomitant]

REACTIONS (4)
  - BLOOD CREATININE INCREASED [None]
  - SKIN DISCOLOURATION [None]
  - SKIN DISORDER [None]
  - SOFT TISSUE DISORDER [None]
